FAERS Safety Report 5634549-0 (Version None)
Quarter: 2008Q1

REPORT INFORMATION
  Report Type: 
  Country: None (occurrence: None)
  Receive Date: 20080222
  Receipt Date: 20080219
  Transmission Date: 20080703
  Serious: Yes (Death, Other)
  Sender: FDA-Public Use
  Company Number: PHBS2007BR18803

PATIENT
  Age: 6 Year
  Sex: Male
  Weight: 10.43 kg

DRUGS (5)
  1. TRILEPTAL [Suspect]
     Indication: PARTIAL SEIZURES
     Dosage: A HALF BOTTLE/ONCE
     Route: 048
  2. TRILEPTAL [Suspect]
     Dosage: 2.5 ML, Q12H
     Route: 048
     Dates: start: 20060101
  3. TRILEPTAL [Suspect]
     Dosage: 5 ML, Q12H
     Route: 048
  4. TRILEPTAL [Suspect]
     Dosage: 10 ML, Q12H
     Route: 048
  5. TRILEPTAL [Suspect]
     Dosage: 600MG/DAY

REACTIONS (13)
  - AGITATION [None]
  - BOREDOM [None]
  - CHOKING SENSATION [None]
  - CONVULSION [None]
  - CRYING [None]
  - CYANOSIS [None]
  - DRUG LEVEL INCREASED [None]
  - DRUG TOXICITY [None]
  - GRAND MAL CONVULSION [None]
  - SOMNOLENCE [None]
  - URINARY INCONTINENCE [None]
  - URINARY TRACT DISORDER [None]
  - VICTIM OF HOMICIDE [None]
